FAERS Safety Report 4786690-2 (Version None)
Quarter: 2005Q4

REPORT INFORMATION
  Report Type: 
  Country: None (occurrence: None)
  Receive Date: 20051004
  Receipt Date: 20050926
  Transmission Date: 20060501
  Serious: Yes (Hospitalization)
  Sender: FDA-Public Use
  Company Number: GB-BOEHRINGER INGELHEIM PHARMACEUTICALS, INC.-2005-UK-01881UK

PATIENT

DRUGS (2)
  1. PERSANTIN (00015/0052R) [Suspect]
  2. ASPIRIN [Suspect]

REACTIONS (1)
  - HAEMATEMESIS [None]
